FAERS Safety Report 7301480-4 (Version None)
Quarter: 2011Q1

REPORT INFORMATION
  Report Type: 
  Country: None (occurrence: None)
  Receive Date: 20110218
  Receipt Date: 20100212
  Transmission Date: 20110831
  Serious: No
  Sender: FDA-Public Use
  Company Number: US-BRISTOL-MYERS SQUIBB COMPANY-14975874

PATIENT
  Age: 55 Year
  Sex: Female
  Weight: 73 kg

DRUGS (4)
  1. ATENOLOL [Concomitant]
  2. PROTONIX [Concomitant]
  3. TRIAMTERENE [Concomitant]
  4. KENALOG [Suspect]
     Indication: TRIGGER FINGER
     Dosage: 2DF- 2 INJ; ON 7/2009 AND 8/2009
     Dates: start: 20090701

REACTIONS (3)
  - SKIN DEPIGMENTATION [None]
  - INJECTION SITE PAIN [None]
  - INJECTION SITE IRRITATION [None]
